FAERS Safety Report 5954138-8 (Version None)
Quarter: 2008Q4

REPORT INFORMATION
  Report Type: 
  Country: None (occurrence: None)
  Receive Date: 20081117
  Receipt Date: 20081111
  Transmission Date: 20090506
  Serious: Yes (Hospitalization, Other)
  Sender: FDA-Public Use
  Company Number: JP-JNJFOC-20080901627

PATIENT
  Sex: Male

DRUGS (19)
  1. ITRIZOLE [Suspect]
     Route: 041
  2. ITRIZOLE [Suspect]
     Route: 041
  3. ITRIZOLE [Suspect]
     Route: 041
  4. ITRIZOLE [Suspect]
     Indication: ASPERGILLOSIS
     Route: 041
  5. ITRIZOLE [Suspect]
     Indication: DRUG USE FOR UNKNOWN INDICATION
     Route: 048
  6. AMOBAN [Concomitant]
     Route: 048
  7. MUCOSOLVAN [Concomitant]
     Dosage: 15-45 MG
     Route: 048
  8. LOXONIN [Concomitant]
     Dosage: 60-80 MG
     Route: 048
  9. AZULENE-GLUTAMINE FINE GRANULE [Concomitant]
     Dosage: 0.5-1.5 G
     Route: 048
  10. PROTECADIN [Concomitant]
     Dosage: 10-20 MG
     Route: 048
  11. PROTECADIN [Concomitant]
     Dosage: 10-20 MG
     Route: 048
  12. LASIX [Concomitant]
     Dosage: 20-40 MG
     Route: 048
  13. ASPARA POTASSIUM [Concomitant]
     Dosage: 600-1800 MG
     Route: 048
  14. LANSOPRAZOLE [Concomitant]
     Route: 048
  15. CODEINE PHOSPHATE [Concomitant]
     Dosage: 40-60 MG
     Route: 048
  16. TRYPTANOL [Concomitant]
     Route: 048
  17. MYSLEE [Concomitant]
     Route: 048
  18. GASMOTIN [Concomitant]
     Dosage: 5-15 MG
     Route: 048
  19. UNASYN [Concomitant]
     Route: 042

REACTIONS (2)
  - HEPATIC FUNCTION ABNORMAL [None]
  - PULMONARY ALVEOLAR HAEMORRHAGE [None]
